FAERS Safety Report 5832164-7 (Version None)
Quarter: 2008Q3

REPORT INFORMATION
  Report Type: 
  Country: None (occurrence: None)
  Receive Date: 20080731
  Receipt Date: 20080731
  Transmission Date: 20090109
  Serious: Yes (Other)
  Sender: FDA-Public Use
  Company Number: None

PATIENT
  Age: 63 Year
  Sex: Female
  Weight: 100.6985 kg

DRUGS (2)
  1. CYTOXAN [Suspect]
     Indication: BREAST CANCER
     Dosage: 1236 MG Q 21 DAYS IV DRIP
     Route: 041
     Dates: start: 20080602, end: 20080623
  2. TAXOTERE [Suspect]
     Indication: BREAST CANCER
     Dosage: 155 MG Q 21 DAYS IV DRIP
     Route: 041
     Dates: start: 20080602, end: 20080623

REACTIONS (1)
  - BLOOD CREATININE INCREASED [None]
